FAERS Safety Report 21931445 (Version 1)
Quarter: 2023Q1

REPORT INFORMATION
  Report Type: Spontaneous
  Country: US (occurrence: None)
  Receive Date: 20230130
  Receipt Date: 20230130
  Transmission Date: 20230417
  Serious: Yes (Disabling)
  Sender: FDA-Public Use
  Company Number: None

PATIENT
  Age: 23 Year
  Sex: Female
  Weight: 55.8 kg

DRUGS (4)
  1. AIMOVIG [Suspect]
     Active Substance: ERENUMAB-AOOE
     Indication: Headache
     Dosage: OTHER QUANTITY : 30 CAPSULE(S);?OTHER FREQUENCY : 1 A MONTH;?
     Route: 048
     Dates: start: 20221225, end: 20221225
  2. FLUVOXAMINE [Concomitant]
     Active Substance: FLUVOXAMINE
  3. ALPRAZOLAM [Concomitant]
     Active Substance: ALPRAZOLAM
  4. VITAMINS [Concomitant]
     Active Substance: VITAMINS

REACTIONS (2)
  - Product dispensing error [None]
  - Product dispensing error [None]

NARRATIVE: CASE EVENT DATE: 20221225
